FAERS Safety Report 5856434-1 (Version None)
Quarter: 2008Q3

REPORT INFORMATION
  Report Type: 
  Country: None (occurrence: None)
  Receive Date: 20080825
  Receipt Date: 20080613
  Transmission Date: 20090109
  Serious: Yes (Disabling)
  Sender: FDA-Public Use
  Company Number: A0724121A

PATIENT
  Age: 57 Year
  Sex: Female
  Weight: 53.6 kg

DRUGS (2)
  1. VERAMYST [Suspect]
     Dosage: 1SPR TWICE PER DAY
     Route: 045
     Dates: start: 20080214, end: 20080401
  2. TEMAZEPAM [Concomitant]
     Route: 048

REACTIONS (2)
  - CATARACT [None]
  - VISUAL ACUITY REDUCED [None]
